FAERS Safety Report 7403936-2 (Version None)
Quarter: 2011Q2

REPORT INFORMATION
  Report Type: 
  Country: None (occurrence: None)
  Receive Date: 20110408
  Receipt Date: 20110401
  Transmission Date: 20111010
  Serious: Yes (Hospitalization, Other)
  Sender: FDA-Public Use
  Company Number: US-B.I. PHARMACEUTICALS,INC./RIDGEFIELD-2011-BP-00940PF

PATIENT
  Sex: Female

DRUGS (13)
  1. DEXAMETHASONE [Concomitant]
     Indication: SUPERIOR VENA CAVA SYNDROME
  2. SPIRIVA [Suspect]
     Indication: DYSPNOEA
  3. SPIRIVA [Suspect]
     Indication: SMALL CELL LUNG CANCER STAGE UNSPECIFIED
     Dosage: 18 MCG
     Route: 055
     Dates: start: 20100501
  4. CISPLATIN/ETOPUSIDE [Concomitant]
     Dates: start: 20100601, end: 20100801
  5. CARBOPLAVEN/ETUPISIDE [Concomitant]
     Dates: start: 20100901, end: 20100901
  6. CHEMO [Concomitant]
     Indication: SUPERIOR VENA CAVA SYNDROME
  7. SPIRIVA [Suspect]
     Indication: RESPIRATORY DISORDER
  8. CARAFATE [Concomitant]
     Indication: RADIATION SKIN INJURY
  9. STEROIDS [Concomitant]
     Indication: SWELLING FACE
  10. STEROIDS [Concomitant]
     Indication: LOCAL SWELLING
  11. SWISH AND SWALLOW [Concomitant]
     Indication: RADIATION SKIN INJURY
  12. VALIUM [Concomitant]
     Indication: MUSCLE SPASMS
  13. ACETAMINOPHEN [Concomitant]
     Indication: MUSCLE SPASMS

REACTIONS (3)
  - SUPERIOR VENA CAVA SYNDROME [None]
  - SMALL CELL LUNG CANCER RECURRENT [None]
  - SWELLING [None]
